FAERS Safety Report 14520215 (Version 2)
Quarter: 2018Q1

REPORT INFORMATION
  Report Type: Spontaneous
  Country: DE (occurrence: DE)
  Receive Date: 20180212
  Receipt Date: 20180213
  Transmission Date: 20180509
  Serious: Yes (Other)
  Sender: FDA-Public Use
  Company Number: PHHY2015DE177539

PATIENT
  Age: 52 Year
  Sex: Male
  Weight: 70 kg

DRUGS (6)
  1. PEGINTRON [Suspect]
     Active Substance: PEGINTERFERON ALFA-2B
     Indication: CHRONIC HEPATITIS C
     Dosage: 100 UG/KG, QW
     Route: 058
     Dates: start: 20140918
  2. RIBAVIRIN. [Suspect]
     Active Substance: RIBAVIRIN
     Dosage: 1000 MG, QD
     Route: 048
     Dates: start: 20140918, end: 20141215
  3. RIBAVIRIN. [Suspect]
     Active Substance: RIBAVIRIN
     Indication: CHRONIC HEPATITIS C
     Dosage: 1000 MG, QD
     Route: 048
     Dates: start: 20140918
  4. DIAZEPAM. [Concomitant]
     Active Substance: DIAZEPAM
     Dosage: UNK, PRN
     Route: 048
  5. SOFOSBUVIR [Suspect]
     Active Substance: SOFOSBUVIR
     Indication: CHRONIC HEPATITIS C
     Dosage: 400 MG, QD
     Route: 048
     Dates: start: 20140918
  6. DIAZEPAM. [Concomitant]
     Active Substance: DIAZEPAM
     Indication: PRODUCT USED FOR UNKNOWN INDICATION
     Dosage: 1 OT, UNK
     Route: 065

REACTIONS (5)
  - Insomnia [Recovered/Resolved]
  - Influenza like illness [Recovered/Resolved]
  - Injection site erythema [Recovered/Resolved]
  - Depression [Recovered/Resolved]
  - Nausea [Recovered/Resolved]

NARRATIVE: CASE EVENT DATE: 2014
